FAERS Safety Report 6257868-6 (Version None)
Quarter: 2009Q3

REPORT INFORMATION
  Report Type: 
  Country: None (occurrence: None)
  Receive Date: 20090707
  Receipt Date: 20090623
  Transmission Date: 20100115
  Serious: Yes (Death)
  Sender: FDA-Public Use
  Company Number: US-RANBAXY-2009RR-25280

PATIENT
  Sex: Female

DRUGS (11)
  1. ACETAMINOPHEN [Suspect]
     Indication: HEADACHE
     Dosage: 2 G, 1/WEEK
  2. ACETAMINOPHEN [Suspect]
     Dosage: 1 G, 1/WEEK
  3. SUNITINIB [Suspect]
     Indication: GASTROINTESTINAL CANCER METASTATIC
     Dosage: 50 MG, QD
     Dates: start: 20040701
  4. LEVOTHYROXINE SODIUM [Suspect]
     Indication: HYPOTHYROIDISM
     Dosage: 50 UG, QD
     Route: 048
  5. LEVOTHYROXINE SODIUM [Suspect]
     Dosage: 100 UG, QD
  6. LEVOTHYROXINE SODIUM [Suspect]
     Dosage: 150 UG, QD
  7. TYLENOL PM [Suspect]
     Indication: INSOMNIA
     Dosage: 500 MG, QD
  8. IMATINIB MESYLATE [Concomitant]
     Dosage: UNK
     Dates: start: 20030501, end: 20040101
  9. METHYLPREDNISOLONE [Concomitant]
  10. SODIUM BICARBONATE [Concomitant]
  11. VITAMIN K [Concomitant]

REACTIONS (2)
  - DRUG INTERACTION [None]
  - HEPATIC FAILURE [None]
